FAERS Safety Report 4576995-2 (Version None)
Quarter: 2005Q1

REPORT INFORMATION
  Report Type: 
  Country: None (occurrence: None)
  Receive Date: 20050208
  Receipt Date: 20050126
  Transmission Date: 20050727
  Serious: Yes (Hospitalization)
  Sender: FDA-Public Use
  Company Number: HQWYE941628JAN05

PATIENT
  Age: 48 Year
  Sex: Female
  Weight: 70 kg

DRUGS (12)
  1. RAPAMUNE [Suspect]
     Indication: PROPHYLAXIS AGAINST TRANSPLANT REJECTION
     Dosage: 5 MG 1 X PER 1 DAY, ORAL
     Route: 048
     Dates: start: 20050114
  2. RAPAMUNE [Suspect]
  3. NEUTRA-PHOS (POTASSIUM PHOSPHATE DIBASIC/POTASSIUM PHOSPHATE MONOBASIC [Suspect]
     Dates: end: 20050101
  4. PROGRAF [Concomitant]
  5. PREDNISONE TAB [Concomitant]
  6. ACYCLOVIR [Concomitant]
  7. MYCELEX [Concomitant]
  8. PROTONIX [Concomitant]
  9. NORVASC [Concomitant]
  10. REGLAN [Concomitant]
  11. NPH INSULIN [Concomitant]
  12. SCOPOLAMINE (HYOSCINE) [Concomitant]

REACTIONS (2)
  - DIARRHOEA [None]
  - NAUSEA [None]
